FAERS Safety Report 5780341-6 (Version None)
Quarter: 2008Q2

REPORT INFORMATION
  Report Type: 
  Country: None (occurrence: None)
  Receive Date: 20080620
  Receipt Date: 20080612
  Transmission Date: 20081010
  Serious: Yes (Other)
  Sender: FDA-Public Use
  Company Number: B0426855A

PATIENT
  Age: 15 Year
  Sex: Female

DRUGS (7)
  1. SEROXAT [Suspect]
     Route: 065
     Dates: start: 19991126
  2. PROZAC [Concomitant]
     Dates: start: 20010123
  3. CIPRAMIL [Concomitant]
     Dates: start: 20010517
  4. BUSPIRONE HCL [Concomitant]
     Dates: start: 20070401
  5. DULOXETINE [Concomitant]
     Dates: start: 20070701
  6. VENLAFAXINE HCL [Concomitant]
     Dates: start: 20070901
  7. EFFEXOR XR [Concomitant]
     Dates: start: 20071201

REACTIONS (16)
  - AGGRESSION [None]
  - AGITATION [None]
  - CONFUSIONAL STATE [None]
  - DEPRESSED MOOD [None]
  - DISTURBANCE IN ATTENTION [None]
  - FATIGUE [None]
  - HEAD BANGING [None]
  - INTENTIONAL SELF-INJURY [None]
  - MEMORY IMPAIRMENT [None]
  - MOOD SWINGS [None]
  - PANIC ATTACK [None]
  - RESTLESSNESS [None]
  - SOMNOLENCE [None]
  - SUICIDE ATTEMPT [None]
  - THINKING ABNORMAL [None]
  - WITHDRAWAL SYNDROME [None]
